FAERS Safety Report 4536607-0 (Version None)
Quarter: 2004Q4

REPORT INFORMATION
  Report Type: 
  Country: None (occurrence: None)
  Receive Date: 20041223
  Receipt Date: 20041215
  Transmission Date: 20050328
  Serious: Yes (Death, Hospitalization, Other)
  Sender: FDA-Public Use
  Company Number: JP-BRISTOL-MYERS SQUIBB COMPANY-12797502

PATIENT
  Age: 35 Year
  Sex: Male

DRUGS (5)
  1. ZERIT [Suspect]
     Indication: HIV INFECTION
     Route: 048
     Dates: start: 20030101
  2. VIDEX EC [Suspect]
     Indication: HIV INFECTION
     Route: 048
     Dates: start: 20030101
  3. INTERFERON ALFA-2A [Suspect]
     Indication: HEPATITIS CHRONIC ACTIVE
     Dates: start: 20030901
  4. RIBAVIRIN [Suspect]
     Indication: HEPATITIS CHRONIC ACTIVE
     Route: 048
     Dates: start: 20030901
  5. KALETRA [Suspect]
     Indication: HIV INFECTION
     Route: 048
     Dates: start: 20030101

REACTIONS (14)
  - ANOREXIA [None]
  - BLOOD BILIRUBIN INCREASED [None]
  - ENTEROCOLITIS [None]
  - FUNGAL INFECTION [None]
  - HEPATIC CIRRHOSIS [None]
  - HEPATIC FAILURE [None]
  - HEPATIC STEATOSIS [None]
  - HEPATITIS C [None]
  - HYPERLACTACIDAEMIA [None]
  - MULTI-ORGAN FAILURE [None]
  - NAUSEA [None]
  - NEPHROPATHY [None]
  - OESOPHAGEAL VARICES HAEMORRHAGE [None]
  - PANCREATITIS ACUTE [None]
